FAERS Safety Report 9449882 (Version 2)
Quarter: 2013Q3

REPORT INFORMATION
  Report Type: Spontaneous
  Country: JP (occurrence: JP)
  Receive Date: 20130809
  Receipt Date: 20130823
  Transmission Date: 20140515
  Serious: Yes (Hospitalization)
  Sender: FDA-Public Use
  Company Number: JP-NOVOPROD-384296

PATIENT
  Age: 4 Year
  Sex: Male
  Weight: 14 kg

DRUGS (1)
  1. NORDITROPIN FLEXPROCHU 6.7 MG/ML [Suspect]
     Indication: SMALL FOR DATES BABY
     Dosage: 0.9 MG, QD
     Route: 058
     Dates: start: 20120607

REACTIONS (1)
  - Nephrotic syndrome [Not Recovered/Not Resolved]
